FAERS Safety Report 25791194 (Version 1)
Quarter: 2025Q3

REPORT INFORMATION
  Report Type: Spontaneous
  Country: US (occurrence: US)
  Receive Date: 20250911
  Receipt Date: 20250911
  Transmission Date: 20251020
  Serious: Yes (Hospitalization)
  Sender: MYLAN
  Company Number: US-MYLANLABS-2025M1076750

PATIENT
  Age: 71 Year
  Sex: Female

DRUGS (4)
  1. DOXORUBICIN [Suspect]
     Active Substance: DOXORUBICIN
     Indication: Adult T-cell lymphoma/leukaemia
  2. PREDNISONE [Suspect]
     Active Substance: PREDNISONE
     Indication: Adult T-cell lymphoma/leukaemia
  3. CYCLOPHOSPHAMIDE [Suspect]
     Active Substance: CYCLOPHOSPHAMIDE
     Indication: Adult T-cell lymphoma/leukaemia
  4. VINCRISTINE [Suspect]
     Active Substance: VINCRISTINE
     Indication: Adult T-cell lymphoma/leukaemia

REACTIONS (2)
  - Drug ineffective [Unknown]
  - Disease progression [Unknown]
